FAERS Safety Report 12529757 (Version 1)
Quarter: 2016Q3

REPORT INFORMATION
  Report Type: Spontaneous
  Country: US (occurrence: US)
  Receive Date: 20160706
  Receipt Date: 20160706
  Transmission Date: 20161109
  Serious: No
  Sender: FDA-Public Use
  Company Number: US-NOVEL LABORATORIES, INC-E2B_00005480

PATIENT
  Age: 66 Year
  Sex: Female
  Weight: 73.48 kg

DRUGS (1)
  1. GAVILYTE - N [Suspect]
     Active Substance: POLYETHYLENE GLYCOL 3350\POTASSIUM CHLORIDE\SODIUM BICARBONATE\SODIUM CHLORIDE
     Indication: COLONOSCOPY
     Dosage: DRANK 2 LITERS
     Route: 048
     Dates: start: 20160323, end: 20160323

REACTIONS (5)
  - Aspiration [Recovered/Resolved]
  - Gastrooesophageal reflux prophylaxis [Recovered/Resolved]
  - Productive cough [Not Recovered/Not Resolved]
  - Cough [Recovered/Resolved]
  - Drug ineffective [None]

NARRATIVE: CASE EVENT DATE: 20160324
